FAERS Safety Report 19191883 (Version 7)
Quarter: 2021Q2

REPORT INFORMATION
  Report Type: Report from Study
  Country: IT (occurrence: IT)
  Receive Date: 20210428
  Receipt Date: 20210604
  Transmission Date: 20210717
  Serious: Yes (Life-Threatening, Hospitalization, Other)
  Sender: FDA-Public Use
  Company Number: IT-BRISTOL-MYERS SQUIBB COMPANY-BMS-2021-041086

PATIENT
  Age: 42 Year
  Sex: Female
  Weight: 80 kg

DRUGS (8)
  1. DELORAZEPAM [Concomitant]
     Active Substance: DELORAZEPAM
     Indication: ANXIETY
     Dosage: 0.5 MG, 10 GGT BEFORE SLEEP
     Route: 065
  2. NIVOLUMAB [Suspect]
     Active Substance: NIVOLUMAB
     Indication: ANGIOSARCOMA
     Dosage: 240 MILLIGRAM, CYCLIC (2 WEEKS)
     Route: 065
     Dates: start: 20210322, end: 20210322
  3. FLUTICASONE PROPIONATE;SALMETEROL XINAFOATE [Concomitant]
     Active Substance: FLUTICASONE PROPIONATE\SALMETEROL XINAFOATE
     Indication: ASTHMA
     Dosage: 2 TIMES/DAY
  4. SUNITINIB MALATE. [Suspect]
     Active Substance: SUNITINIB MALATE
     Dosage: 25 MILLIGRAM, QD
     Route: 048
     Dates: start: 20210412, end: 20210426
  5. CITALOPRAM [Concomitant]
     Active Substance: CITALOPRAM HYDROBROMIDE
     Indication: DEPRESSION
     Dosage: UNK
     Route: 065
  6. NIVOLUMAB [Suspect]
     Active Substance: NIVOLUMAB
     Dosage: 240 MILLIGRAM, CYCLIC (2 WEEKS)
     Route: 042
     Dates: start: 20210412, end: 20210412
  7. CETIRIZINA [CETIRIZINE] [Concomitant]
     Active Substance: CETIRIZINE HYDROCHLORIDE
     Indication: ASTHMA
     Dosage: 10 MG 1/2 CP
     Route: 065
  8. SUNITINIB MALATE. [Suspect]
     Active Substance: SUNITINIB MALATE
     Indication: ANGIOSARCOMA
     Dosage: 37.5 MILLIGRAM, QD
     Route: 065
     Dates: start: 20210226, end: 20210315

REACTIONS (2)
  - Hepatitis [Recovered/Resolved]
  - Pancreatitis [Recovered/Resolved]

NARRATIVE: CASE EVENT DATE: 20210426
